FAERS Safety Report 11564973 (Version 1)
Quarter: 2015Q3

REPORT INFORMATION
  Report Type: Spontaneous
  Country: US (occurrence: US)
  Receive Date: 20150928
  Receipt Date: 20150928
  Transmission Date: 20151125
  Serious: No
  Sender: FDA-Public Use
  Company Number: US-EXELIXIS-CABO-13003409

PATIENT
  Age: 57 Year
  Sex: Female
  Weight: 38 kg

DRUGS (14)
  1. COMETRIQ [Suspect]
     Active Substance: CABOZANTINIB S-MALATE
     Indication: THYROID CANCER
     Dosage: 140 MG, QD
     Route: 048
     Dates: start: 20130928, end: 20131007
  2. COMETRIQ [Suspect]
     Active Substance: CABOZANTINIB S-MALATE
     Dosage: 80 MG, QD
     Route: 048
     Dates: start: 2013, end: 2013
  3. COMETRIQ [Suspect]
     Active Substance: CABOZANTINIB S-MALATE
     Dosage: 40 MG, QOD
     Route: 048
     Dates: start: 20140121
  4. LEVOTHYROXINE. [Concomitant]
     Active Substance: LEVOTHYROXINE
  5. CALCIUM [Concomitant]
     Active Substance: CALCIUM
  6. METHADONE [Concomitant]
     Active Substance: METHADONE HYDROCHLORIDE
  7. COMETRIQ [Suspect]
     Active Substance: CABOZANTINIB S-MALATE
     Dosage: 20 MG, TID
     Route: 048
     Dates: start: 20131017
  8. COMETRIQ [Suspect]
     Active Substance: CABOZANTINIB S-MALATE
     Dosage: 60 MG, QOD
     Route: 048
     Dates: start: 20140121
  9. CALCITRIOL. [Concomitant]
     Active Substance: CALCITRIOL
  10. MELOXICAM A [Concomitant]
  11. FENTORA [Concomitant]
     Active Substance: FENTANYL CITRATE
  12. FENTANYL. [Concomitant]
     Active Substance: FENTANYL
  13. GABAPENTIN. [Concomitant]
     Active Substance: GABAPENTIN
  14. AMLODIPINE BESYLATE. [Concomitant]
     Active Substance: AMLODIPINE BESYLATE

REACTIONS (23)
  - Constipation [Recovering/Resolving]
  - Dizziness [Recovering/Resolving]
  - Nausea [Recovering/Resolving]
  - Gingival blister [Recovering/Resolving]
  - Stomatitis [Recovering/Resolving]
  - Rash pruritic [Recovering/Resolving]
  - Throat irritation [Unknown]
  - Hyperaesthesia [Unknown]
  - Balance disorder [Unknown]
  - Neuropathy peripheral [Recovering/Resolving]
  - Dysphonia [Recovering/Resolving]
  - Off label use [Unknown]
  - Alopecia [Unknown]
  - Blood pressure increased [Not Recovered/Not Resolved]
  - Gastrooesophageal reflux disease [Not Recovered/Not Resolved]
  - Photosensitivity reaction [Unknown]
  - Hyperkeratosis [Unknown]
  - Oral discomfort [Recovering/Resolving]
  - Fatigue [Not Recovered/Not Resolved]
  - Dysgeusia [Unknown]
  - Gastric disorder [Unknown]
  - Diarrhoea [Recovering/Resolving]
  - Skin disorder [Unknown]

NARRATIVE: CASE EVENT DATE: 2013
